FAERS Safety Report 6896802-2 (Version None)
Quarter: 2010Q3

REPORT INFORMATION
  Report Type: 
  Country: None (occurrence: None)
  Receive Date: 20100802
  Receipt Date: 20070315
  Transmission Date: 20110219
  Serious: No
  Sender: FDA-Public Use
  Company Number: US-PFIZER INC-2007003337

PATIENT
  Sex: Female
  Weight: 68 kg

DRUGS (2)
  1. LYRICA [Suspect]
     Indication: NERVE COMPRESSION
     Route: 048
     Dates: start: 20061224, end: 20061226
  2. CELEBREX [Concomitant]

REACTIONS (6)
  - ASTHENIA [None]
  - DECREASED APPETITE [None]
  - DIZZINESS [None]
  - MALAISE [None]
  - NAUSEA [None]
  - VOMITING [None]
